FAERS Safety Report 5039622-6 (Version None)
Quarter: 2006Q2

REPORT INFORMATION
  Report Type: 
  Country: None (occurrence: None)
  Receive Date: 20060601
  Receipt Date: 20060103
  Transmission Date: 20061013
  Serious: No
  Sender: FDA-Public Use
  Company Number: 2006PV006787

PATIENT
  Sex: Male

DRUGS (2)
  1. BYETTA [Suspect]
     Dosage: 5 MCG; SC
     Route: 058
     Dates: start: 20051128
  2. GLUCOVANCE [Concomitant]

REACTIONS (2)
  - HYPERSENSITIVITY [None]
  - INJECTION SITE URTICARIA [None]
